FAERS Safety Report 13452519 (Version 3)
Quarter: 2017Q3

REPORT INFORMATION
  Report Type: Report from Study
  Country: None (occurrence: US)
  Receive Date: 20170418
  Receipt Date: 20170804
  Transmission Date: 20171127
  Serious: Yes (Death, Hospitalization, Other)
  Sender: FDA-Public Use
  Company Number: US-ABBVIE-17K-163-1946465-00

PATIENT
  Sex: Male
  Weight: 72.64 kg

DRUGS (2)
  1. HUMIRA [Suspect]
     Active Substance: ADALIMUMAB
     Indication: PSORIASIS
     Route: 058
     Dates: start: 201101, end: 20150602
  2. HUMIRA [Suspect]
     Active Substance: ADALIMUMAB
     Route: 058
     Dates: start: 201502, end: 20160206

REACTIONS (14)
  - Feeling abnormal [Unknown]
  - Bradyphrenia [Unknown]
  - Hypersomnia [Not Recovered/Not Resolved]
  - Wound complication [Unknown]
  - Amnesia [Not Recovered/Not Resolved]
  - Hypertension [Unknown]
  - Anal cancer metastatic [Fatal]
  - Premature ageing [Not Recovered/Not Resolved]
  - Dyspnoea [Unknown]
  - Grip strength decreased [Not Recovered/Not Resolved]
  - Emotional distress [Unknown]
  - General physical health deterioration [Not Recovered/Not Resolved]
  - Hair colour changes [Unknown]
  - Malignant neoplasm progression [Not Recovered/Not Resolved]

NARRATIVE: CASE EVENT DATE: 2015
